FAERS Safety Report 10374906 (Version 1)
Quarter: 2014Q3

REPORT INFORMATION
  Report Type: Report from Study
  Country: US (occurrence: US)
  Receive Date: 20140811
  Receipt Date: 20140811
  Transmission Date: 20150326
  Serious: Yes (Death, Hospitalization, Other)
  Sender: FDA-Public Use
  Company Number: US-ASTELLAS-2014US009895

PATIENT
  Sex: Male

DRUGS (2)
  1. FERROUS SULFATE [Concomitant]
     Active Substance: FERROUS SULFATE\FERROUS SULFATE, DRIED
     Indication: ANAEMIA
     Dosage: UNK UNK, THRICE DAILY
     Route: 048
     Dates: start: 20110727, end: 20140421
  2. ERLOTINIB [Suspect]
     Active Substance: ERLOTINIB
     Indication: LUNG NEOPLASM MALIGNANT
     Route: 048
     Dates: start: 20110321, end: 20140421

REACTIONS (4)
  - Anaemia [Unknown]
  - Gastrointestinal haemorrhage [Fatal]
  - Cardiac arrest [Fatal]
  - Respiratory arrest [Unknown]
